FAERS Safety Report 10352602 (Version 1)
Quarter: 2014Q3

REPORT INFORMATION
  Report Type: Spontaneous
  Country: US (occurrence: US)
  Receive Date: 20140730
  Receipt Date: 20140730
  Transmission Date: 20150326
  Serious: No
  Sender: FDA-Public Use
  Company Number: US-ABBVIE-14P-163-1211439-00

PATIENT
  Age: 51 Year
  Sex: Female
  Weight: 93.07 kg

DRUGS (5)
  1. SYNTHROID [Suspect]
     Active Substance: LEVOTHYROXINE SODIUM
     Indication: HYPOTHYROIDISM
     Dosage: DEPENDING ON TSH LEVELS
     Route: 048
     Dates: start: 2013
  2. SYNTHROID [Suspect]
     Active Substance: LEVOTHYROXINE SODIUM
     Indication: THYROID CANCER
     Dosage: DEPENDING ON TSH LEVELS
     Route: 048
     Dates: start: 2013
  3. SYNTHROID [Suspect]
     Active Substance: LEVOTHYROXINE SODIUM
     Dosage: DEPENDING ON TSH LEVELS
     Route: 048
     Dates: start: 2013
  4. CYTOMEL [Concomitant]
     Active Substance: LIOTHYRONINE SODIUM
     Indication: UNEVALUABLE EVENT
  5. LIOTHYRONINE [Concomitant]
     Active Substance: LIOTHYRONINE
     Indication: UNEVALUABLE EVENT

REACTIONS (7)
  - Blood thyroid stimulating hormone abnormal [Unknown]
  - Pruritus [Unknown]
  - Myalgia [Unknown]
  - Blood thyroid stimulating hormone decreased [Unknown]
  - Unevaluable event [Unknown]
  - Urticaria [Unknown]
  - Feeling abnormal [Unknown]

NARRATIVE: CASE EVENT DATE: 20140130
